FAERS Safety Report 7573740-3 (Version None)
Quarter: 2011Q2

REPORT INFORMATION
  Report Type: 
  Country: None (occurrence: None)
  Receive Date: 20110627
  Receipt Date: 20110616
  Transmission Date: 20111010
  Serious: Yes (Hospitalization)
  Sender: FDA-Public Use
  Company Number: CA-ROCHE-784067

PATIENT
  Sex: Male

DRUGS (8)
  1. FAMOTIDINE [Concomitant]
  2. HYDROMORPHONE HCL [Concomitant]
  3. BEVACIZUMAB [Suspect]
     Indication: GLIOBLASTOMA
     Dosage: FREQUENCY: 2 WEEKS
     Route: 042
     Dates: start: 20110317
  4. TYLENOL W/ CODEINE NO. 3 [Concomitant]
  5. DEXAMETHASONE [Concomitant]
  6. LYRICA [Concomitant]
  7. LOVENOX [Concomitant]
  8. DILANTIN [Concomitant]

REACTIONS (1)
  - CONVULSION [None]
